FAERS Safety Report 5283416-3 (Version None)
Quarter: 2007Q2

REPORT INFORMATION
  Report Type: 
  Country: None (occurrence: None)
  Receive Date: 20070402
  Receipt Date: 20070323
  Transmission Date: 20071010
  Serious: Yes (Other)
  Sender: FDA-Public Use
  Company Number: JP-JNJFOC-20070304448

PATIENT
  Age: 70 Year
  Sex: Male

DRUGS (6)
  1. ITRACONAZOLE [Suspect]
     Indication: NAIL TINEA
     Route: 048
  2. AMARYL [Concomitant]
     Route: 048
  3. DIOVAN [Concomitant]
     Route: 065
  4. ACTOS [Concomitant]
     Route: 065
  5. TENORMIN [Concomitant]
     Route: 065
  6. SELECTOL [Concomitant]
     Route: 065

REACTIONS (1)
  - VENTRICULAR EXTRASYSTOLES [None]
